FAERS Safety Report 4498667-5 (Version None)
Quarter: 2004Q4

REPORT INFORMATION
  Report Type: 
  Country: None (occurrence: None)
  Receive Date: 20041111
  Receipt Date: 20040322
  Transmission Date: 20050328
  Serious: Yes (Hospitalization)
  Sender: FDA-Public Use
  Company Number: FR-ABBOTT-04P-056-0254423-00

PATIENT
  Age: 76 Year
  Sex: Male
  Weight: 91 kg

DRUGS (12)
  1. DEPAKINE CHRONO TABLETS [Suspect]
     Indication: EPILEPSY
     Route: 048
  2. DEPAKINE CHRONO TABLETS [Suspect]
  3. METOPROLOL TARTRATE [Suspect]
     Indication: ANGINA PECTORIS
     Route: 048
  4. METOPROLOL TARTRATE [Suspect]
  5. ACARBOSE [Suspect]
     Indication: DIABETES MELLITUS
     Route: 048
  6. ACARBOSE [Suspect]
  7. ACETYLSALICYLATE LYSINE [Suspect]
     Indication: DRUG USE FOR UNKNOWN INDICATION
     Route: 048
  8. ACETYLSALICYLATE LYSINE [Suspect]
  9. FUROSEMIDE [Suspect]
     Indication: DRUG USE FOR UNKNOWN INDICATION
     Route: 048
  10. FUROSEMIDE [Suspect]
  11. POTASSIUM CHLORIDE [Suspect]
     Indication: DRUG USE FOR UNKNOWN INDICATION
     Route: 048
  12. POTASSIUM CHLORIDE [Suspect]

REACTIONS (6)
  - ECZEMA [None]
  - ERYTHEMA MULTIFORME [None]
  - HEPATIC NEOPLASM [None]
  - OEDEMA PERIPHERAL [None]
  - SKIN ATROPHY [None]
  - UNEVALUABLE EVENT [None]
